FAERS Safety Report 8579406-5 (Version None)
Quarter: 2012Q3

REPORT INFORMATION
  Report Type: 
  Country: None (occurrence: None)
  Receive Date: 20120731
  Receipt Date: 20120731
  Transmission Date: 20120928
  Serious: Yes (Life-Threatening, Hospitalization)
  Sender: FDA-Public Use
  Company Number: None

PATIENT
  Age: 67 Year
  Sex: Male
  Weight: 63.2 kg

DRUGS (1)
  1. WARFARIN SODIUM [Suspect]
     Indication: ATRIAL FIBRILLATION
     Dosage: 5 MG OTHER PO
     Route: 048
     Dates: start: 20090331, end: 20120725

REACTIONS (9)
  - HAEMATOCRIT DECREASED [None]
  - ASTHENIA [None]
  - DYSPNOEA [None]
  - ANXIETY [None]
  - MUCOSAL DISCOLOURATION [None]
  - GAIT DISTURBANCE [None]
  - GASTRIC HAEMORRHAGE [None]
  - INTERNATIONAL NORMALISED RATIO INCREASED [None]
  - HAEMOGLOBIN DECREASED [None]
